FAERS Safety Report 4359901-5 (Version None)
Quarter: 2004Q2

REPORT INFORMATION
  Report Type: 
  Country: None (occurrence: None)
  Receive Date: 20040518
  Receipt Date: 20040511
  Transmission Date: 20050107
  Serious: Yes (Other)
  Sender: FDA-Public Use
  Company Number: NL-ROCHE-367330

PATIENT
  Age: 53 Year
  Sex: Female

DRUGS (4)
  1. XELODA [Suspect]
     Indication: DRUG USE FOR UNKNOWN INDICATION
     Dosage: DOSAGE REGIMEN DESCRIBED AS 2DD50
     Route: 048
     Dates: start: 20040422
  2. FEMARA [Concomitant]
     Route: 048
  3. DOMPERIDONE [Concomitant]
     Route: 048
  4. PYRIDOXINE [Concomitant]
     Route: 048

REACTIONS (1)
  - DYSURIA [None]
